FAERS Safety Report 5941457-4 (Version None)
Quarter: 2008Q4

REPORT INFORMATION
  Report Type: 
  Country: None (occurrence: None)
  Receive Date: 20081103
  Receipt Date: 20081103
  Transmission Date: 20090506
  Serious: No
  Sender: FDA-Public Use
  Company Number: None

PATIENT
  Age: 45 Year
  Sex: Female
  Weight: 129.2752 kg

DRUGS (1)
  1. ALBUTEROL [Suspect]
     Indication: ASTHMA
     Dosage: 2 INHALATIONS EVERY 4 TO 6 HOURS PO
     Route: 048
     Dates: start: 20081020, end: 20081101

REACTIONS (5)
  - DEVICE INEFFECTIVE [None]
  - DEVICE OCCLUSION [None]
  - DRUG INEFFECTIVE [None]
  - DYSPNOEA [None]
  - PRODUCT QUALITY ISSUE [None]
